FAERS Safety Report 8850668 (Version 4)
Quarter: 2014Q4

REPORT INFORMATION
  Report Type: Spontaneous
  Country: US (occurrence: US)
  Receive Date: 20121019
  Receipt Date: 20141006
  Transmission Date: 20150529
  Serious: Yes (Hospitalization, Disabling, Other)
  Sender: FDA-Public Use
  Company Number: US-MERCK-1210USA005097

PATIENT
  Sex: Female

DRUGS (6)
  1. FOSAMAX PLUS D [Suspect]
     Active Substance: ALENDRONATE SODIUM\CHOLECALCIFEROL
     Dosage: UNK
     Route: 048
     Dates: start: 2008
  2. WELLBUTRIN [Concomitant]
     Active Substance: BUPROPION HYDROCHLORIDE
     Indication: EX-TOBACCO USER
     Dosage: 150 MG, UNK
     Dates: start: 20100421
  3. FOSAMAX [Suspect]
     Active Substance: ALENDRONATE SODIUM
     Dosage: 70 MG, QW
     Route: 048
     Dates: start: 200111
  4. LASIX [Concomitant]
     Active Substance: FUROSEMIDE
     Dosage: 40 MG, UNK
     Dates: start: 1970
  5. FOSAMAX [Suspect]
     Active Substance: ALENDRONATE SODIUM
     Indication: OSTEOPOROSIS
     Dosage: 10 MG, QD
     Route: 048
     Dates: start: 199803, end: 200110
  6. ALENDRONATE SODIUM. [Suspect]
     Active Substance: ALENDRONATE SODIUM
     Indication: OSTEOPOROSIS
     Dosage: 70 MG, UNK
     Route: 048
     Dates: start: 200806, end: 200909

REACTIONS (39)
  - Joint injury [Not Recovered/Not Resolved]
  - Open reduction of fracture [Unknown]
  - Device failure [Unknown]
  - Fracture nonunion [Unknown]
  - Uterine dilation and curettage [Unknown]
  - Back pain [Unknown]
  - Otitis externa [Unknown]
  - Fall [Unknown]
  - Clavicle fracture [Unknown]
  - Fracture nonunion [Unknown]
  - Medical device removal [Unknown]
  - Depression [Unknown]
  - Tooth fracture [Unknown]
  - Gastrooesophageal reflux disease [Unknown]
  - Femur fracture [Not Recovered/Not Resolved]
  - Oedema [Unknown]
  - Blood calcium decreased [Unknown]
  - Pain [Unknown]
  - Open reduction of fracture [Unknown]
  - Hip arthroplasty [Unknown]
  - Tooth infection [Unknown]
  - Osteopenia [Unknown]
  - Dry skin [Unknown]
  - Rash [Unknown]
  - Bone graft [Unknown]
  - Shoulder operation [Unknown]
  - Anxiety [Not Recovered/Not Resolved]
  - Osteonecrosis [Unknown]
  - Osteoarthritis [Unknown]
  - Arthroscopy [Unknown]
  - Hysterectomy [Unknown]
  - Rotator cuff syndrome [Unknown]
  - Hypersensitivity [Unknown]
  - Femur fracture [Not Recovered/Not Resolved]
  - Hip arthroplasty [Unknown]
  - Hip arthroplasty [Unknown]
  - Joint dislocation [Unknown]
  - Drug administration error [Unknown]
  - Hip surgery [Unknown]

NARRATIVE: CASE EVENT DATE: 1998
